FAERS Safety Report 6274053-2 (Version None)
Quarter: 2009Q3

REPORT INFORMATION
  Report Type: 
  Country: None (occurrence: None)
  Receive Date: 20090720
  Receipt Date: 20090707
  Transmission Date: 20100115
  Serious: Yes (Other)
  Sender: FDA-Public Use
  Company Number: US-ELI_LILLY_AND_COMPANY-US200907001545

PATIENT
  Sex: Male

DRUGS (1)
  1. ZYPREXA [Suspect]
     Dates: start: 20050101, end: 20080101

REACTIONS (2)
  - DIABETES MELLITUS [None]
  - PERIPHERAL ARTERIAL OCCLUSIVE DISEASE [None]
